FAERS Safety Report 10436076 (Version 3)
Quarter: 2015Q1

REPORT INFORMATION
  Report Type: Spontaneous
  Country: JP (occurrence: JP)
  Receive Date: 20140908
  Receipt Date: 20150319
  Transmission Date: 20150720
  Serious: Yes (Life-Threatening, Hospitalization, Other)
  Sender: FDA-Public Use
  Company Number: JP-BAYER-2014-124983

PATIENT
  Age: 26 Year
  Sex: Female
  Weight: 47 kg

DRUGS (1)
  1. YAZ [Suspect]
     Active Substance: DROSPIRENONE\ETHINYL ESTRADIOL
     Indication: DYSMENORRHOEA
     Dosage: 1 DF, QD
     Route: 048
     Dates: start: 201108, end: 20140812

REACTIONS (11)
  - Pulmonary embolism [Recovering/Resolving]
  - Dyspnoea [Recovering/Resolving]
  - Muscle spasms [Recovered/Resolved]
  - Enterocolitis [None]
  - Flank pain [None]
  - Pleurisy [None]
  - Pneumonia [None]
  - Chest pain [Recovering/Resolving]
  - Abdominal pain lower [None]
  - Deep vein thrombosis [None]
  - Back pain [Recovering/Resolving]

NARRATIVE: CASE EVENT DATE: 201405
